FAERS Safety Report 24710519 (Version 1)
Quarter: 2024Q4

REPORT INFORMATION
  Report Type: Spontaneous
  Country: CN (occurrence: CN)
  Receive Date: 20241209
  Receipt Date: 20241209
  Transmission Date: 20250115
  Serious: Yes (Other)
  Sender: TOLMAR
  Company Number: CN-TOLMAR, INC.-24CN054674

PATIENT
  Age: 23 Year
  Sex: Female

DRUGS (25)
  1. LEUPROLIDE ACETATE [Suspect]
     Active Substance: LEUPROLIDE ACETATE
     Indication: Invasive ductal breast carcinoma
     Dosage: 11.25 MILLIGRAM, Q 3 MONTH
     Route: 030
     Dates: start: 201602
  2. LEUPROLIDE ACETATE [Suspect]
     Active Substance: LEUPROLIDE ACETATE
     Indication: Triple positive breast cancer
     Dosage: 11.25 MILLIGRAM, Q 3 MONTH
     Route: 030
     Dates: start: 201611
  3. LEUPROLIDE ACETATE [Suspect]
     Active Substance: LEUPROLIDE ACETATE
     Indication: Metastases to central nervous system
     Dosage: 11.25 MILLIGRAM, Q 3 MONTH
     Route: 030
     Dates: start: 202008
  4. LEUPROLIDE ACETATE [Suspect]
     Active Substance: LEUPROLIDE ACETATE
     Indication: Metastases to bone
     Dosage: 11.25 MILLIGRAM, Q 3 MONTH
     Route: 030
     Dates: start: 202203
  5. RADIATION THERAPY [Suspect]
     Active Substance: RADIATION THERAPY
     Indication: Invasive ductal breast carcinoma
     Dosage: UNK (40 GY IN 15 FRACTIONS)
     Dates: start: 201611
  6. RADIATION THERAPY [Suspect]
     Active Substance: RADIATION THERAPY
     Indication: Triple positive breast cancer
     Dosage: UNK (40 GY IN 10 FRACTIONS) FOR THE BRAIN TUMOR BED
     Dates: start: 202006
  7. RADIATION THERAPY [Suspect]
     Active Substance: RADIATION THERAPY
     Indication: Metastases to central nervous system
     Dosage: UNK (30 GY IN 10 FRACTIONS) FOR THE WHOLE-BRAIN
  8. NERATINIB [Suspect]
     Active Substance: NERATINIB
     Indication: Metastases to bone
     Dosage: 120 MILLIGRAM, QD (DAILY) FOR FIRST WEEK
     Dates: start: 202203
  9. NERATINIB [Suspect]
     Active Substance: NERATINIB
     Dosage: 160 MILLIGRAM, QD (DAILY) FOR 1 WEEK
  10. NERATINIB [Suspect]
     Active Substance: NERATINIB
     Dosage: 240 MILLIGRAM, QD (DAILY)
  11. PACLITAXEL [Concomitant]
     Active Substance: PACLITAXEL
     Indication: Invasive ductal breast carcinoma
     Dosage: 80 MILLIGRAM PER SQUARE METRE, WEEKLY FOR 16 WEEK
     Route: 042
     Dates: start: 201602
  12. PACLITAXEL [Concomitant]
     Active Substance: PACLITAXEL
     Indication: Triple positive breast cancer
  13. TRASTUZUMAB [Concomitant]
     Active Substance: TRASTUZUMAB
     Indication: Invasive ductal breast carcinoma
     Dosage: 8 MILLIGRAM PER KILOGRAM (LOADING DOSE FOR FIRST CYCLE)
     Route: 042
     Dates: start: 201602
  14. TRASTUZUMAB [Concomitant]
     Active Substance: TRASTUZUMAB
     Indication: Triple positive breast cancer
     Dosage: 6 MILLIGRAM PER KILOGRAM, Q 3 WEEK
     Route: 042
  15. PERTUZUMAB [Concomitant]
     Active Substance: PERTUZUMAB
     Indication: Invasive ductal breast carcinoma
     Dosage: 80 MILLIGRAM, LOADING DOSE FOR FIRST CYCLE
     Route: 042
     Dates: start: 201602
  16. PERTUZUMAB [Concomitant]
     Active Substance: PERTUZUMAB
     Indication: Triple positive breast cancer
     Dosage: 420 MILLIGRAM, Q 3 WEEK
     Route: 042
  17. LETROZOLE [Concomitant]
     Active Substance: LETROZOLE
     Indication: Invasive ductal breast carcinoma
     Dosage: 2.5 MILLIGRAM, QD (DAILY)
     Route: 048
     Dates: start: 201611
  18. LETROZOLE [Concomitant]
     Active Substance: LETROZOLE
     Indication: Triple positive breast cancer
     Dosage: 2.5 MILLIGRAM, QD (DAILY)
     Route: 048
     Dates: start: 202203
  19. LETROZOLE [Concomitant]
     Active Substance: LETROZOLE
     Indication: Metastases to bone
  20. CAPECITABINE [Concomitant]
     Active Substance: CAPECITABINE
     Indication: Metastases to central nervous system
     Dosage: 1000 MILLIGRAM, BID FOR DAY 1-14 Q3W (2 WEEKS ON, 1 WEEK OFF)
     Dates: start: 202008
  21. CAPECITABINE [Concomitant]
     Active Substance: CAPECITABINE
     Indication: Metastases to bone
     Dosage: 1000 MILLIGRAM, BID FOR DAY 1-14 Q3W (2 WEEKS ON, 1 WEEK OFF)
     Dates: start: 202203
  22. LAPATINIB [Concomitant]
     Active Substance: LAPATINIB
     Indication: Metastases to central nervous system
     Dosage: 750 MILLIGRAM, QD FOR FIRST WEEK
     Dates: start: 202008
  23. LAPATINIB [Concomitant]
     Active Substance: LAPATINIB
     Dosage: 1250 MILLIGRAM, QD
  24. TAMOXIFEN [Concomitant]
     Active Substance: TAMOXIFEN
     Indication: Metastases to central nervous system
     Dosage: 10 MILLIGRAM, BID
     Dates: start: 202008
  25. DENOSUMAB [Concomitant]
     Active Substance: DENOSUMAB
     Indication: Metastases to bone
     Dosage: 120 MILLIGRAM, Q 4 WEEKS
     Route: 058
     Dates: start: 202204

REACTIONS (4)
  - Malignant fibrous histiocytoma [Recovering/Resolving]
  - Malignant neoplasm progression [Recovering/Resolving]
  - Off label use [Unknown]
  - Product use issue [Unknown]

NARRATIVE: CASE EVENT DATE: 20160201
